FAERS Safety Report 5463603-1 (Version None)
Quarter: 2007Q3

REPORT INFORMATION
  Report Type: 
  Country: None (occurrence: None)
  Receive Date: 20070920
  Receipt Date: 20070911
  Transmission Date: 20080115
  Serious: Yes (Hospitalization, Other)
  Sender: FDA-Public Use
  Company Number: BR-ABBOTT-07P-020-0415858-00

PATIENT
  Age: 64 Year
  Sex: Female
  Weight: 63 kg

DRUGS (5)
  1. HUMIRA [Suspect]
     Indication: RHEUMATOID ARTHRITIS
     Route: 058
     Dates: start: 20050401
  2. HUMIRA [Suspect]
  3. ACETAMINOPHEN [Concomitant]
     Indication: PAIN
  4. PREDNISONE [Concomitant]
     Indication: RHEUMATOID ARTHRITIS
  5. LEFLUNOMIDE [Concomitant]
     Indication: RHEUMATOID ARTHRITIS

REACTIONS (6)
  - GAIT DISTURBANCE [None]
  - HYPERTENSION [None]
  - INFLUENZA [None]
  - LOWER LIMB DEFORMITY [None]
  - PAIN IN EXTREMITY [None]
  - UPPER LIMB DEFORMITY [None]
